FAERS Safety Report 8621318-2 (Version None)
Quarter: 2012Q3

REPORT INFORMATION
  Report Type: 
  Country: None (occurrence: None)
  Receive Date: 20120824
  Receipt Date: 20120820
  Transmission Date: 20120928
  Serious: Yes (Other)
  Sender: FDA-Public Use
  Company Number: CN-PFIZER INC-2012202900

PATIENT
  Sex: Male

DRUGS (1)
  1. VIAGRA [Suspect]
     Indication: ERECTILE DYSFUNCTION
     Dosage: 5 TABLETS IN 2 MONTHS
     Route: 048

REACTIONS (3)
  - PROSTATITIS [None]
  - POLLAKIURIA [None]
  - PROSTATIC DISORDER [None]
